FAERS Safety Report 17099368 (Version 1)
Quarter: 2019Q4

REPORT INFORMATION
  Report Type: Spontaneous
  Country: US (occurrence: US)
  Receive Date: 20191201
  Receipt Date: 20191201
  Transmission Date: 20200122
  Serious: Yes (Hospitalization)
  Sender: FDA-Public Use
  Company Number: None

PATIENT
  Age: 78 Year
  Sex: Female
  Weight: 75.4 kg

DRUGS (14)
  1. ASPIRIN. [Suspect]
     Active Substance: ASPIRIN
     Route: 048
  2. ALLOPURINOL 300MG QD [Concomitant]
  3. EZETIMIBE 10MG QD [Concomitant]
  4. FEXOFENDADINE 180MG QD [Concomitant]
  5. FUROSEMIDE 40MG  QD [Concomitant]
  6. METFORMIN 500MG BID [Concomitant]
  7. METOPROLOL 25MG BID [Concomitant]
  8. SPIRONOLACTONE 25MG QD [Concomitant]
     Active Substance: SPIRONOLACTONE
  9. CHLORTHALIDONE 25MG QD [Concomitant]
  10. POTASSIUM 8MEQ QD [Concomitant]
  11. DABIGATRAN [Suspect]
     Active Substance: DABIGATRAN
     Indication: ATRIAL FLUTTER
     Route: 048
  12. PIOGLITAZONE 30MG QD [Concomitant]
  13. PRAVASTATIN 40MG QD [Concomitant]
  14. ERGOCALCIFEROL 50,000UNITS Q MONTH [Concomitant]

REACTIONS (5)
  - Melaena [None]
  - Dizziness postural [None]
  - Loss of consciousness [None]
  - Feeding disorder [None]
  - Haematemesis [None]

NARRATIVE: CASE EVENT DATE: 20130221
